FAERS Safety Report 17893989 (Version 1)
Quarter: 2020Q2

REPORT INFORMATION
  Report Type: Spontaneous
  Country: US (occurrence: US)
  Receive Date: 20200615
  Receipt Date: 20200615
  Transmission Date: 20200714
  Serious: No
  Sender: FDA-Public Use
  Company Number: US-GW PHARMA-202006USGW02072

PATIENT

DRUGS (1)
  1. EPIDIOLEX [Suspect]
     Active Substance: CANNABIDIOL
     Indication: PRODUCT USED FOR UNKNOWN INDICATION
     Dosage: 9.6 MG/KG/DAY, 300 MILLIGRAM, BID
     Route: 048
     Dates: start: 20190517

REACTIONS (2)
  - Decreased appetite [Recovered/Resolved]
  - Weight decreased [Recovered/Resolved]
